FAERS Safety Report 9382229 (Version 1)
Quarter: 2013Q3

REPORT INFORMATION
  Report Type: Spontaneous
  Country: US (occurrence: None)
  Receive Date: 20130702
  Receipt Date: 20130702
  Transmission Date: 20140515
  Serious: Yes (Hospitalization)
  Sender: FDA-Public Use
  Company Number: None

PATIENT
  Age: 31 Year
  Sex: Female
  Weight: 102 kg

DRUGS (2)
  1. MORPHINE [Suspect]
     Indication: PAIN
     Dosage: 15 MG EVERY DAY PO
     Route: 048
     Dates: start: 20130627, end: 20130629
  2. ACETAMINOPHEN/OXYCODONE [Suspect]
     Dosage: 1-2 TAB
     Route: 048
     Dates: start: 20130627, end: 20130629

REACTIONS (4)
  - Pyrexia [None]
  - Nausea [None]
  - Pruritus [None]
  - Vomiting [None]
